FAERS Safety Report 23455918 (Version 1)
Quarter: 2024Q1

REPORT INFORMATION
  Report Type: Spontaneous
  Country: US (occurrence: None)
  Receive Date: 20240129
  Receipt Date: 20240129
  Transmission Date: 20240410
  Serious: No
  Sender: FDA-Public Use
  Company Number: None

PATIENT
  Sex: 0

DRUGS (1)
  1. LINEZOLID [Suspect]
     Active Substance: LINEZOLID

REACTIONS (3)
  - Urticaria [None]
  - Nausea [None]
  - Vomiting [None]
